FAERS Safety Report 12234016 (Version 1)
Quarter: 2016Q2

REPORT INFORMATION
  Report Type: Spontaneous
  Country: AU (occurrence: None)
  Receive Date: 20160401
  Receipt Date: 20160401
  Transmission Date: 20160815
  Serious: Yes (Hospitalization, Other)
  Sender: FDA-Public Use
  Company Number: None

PATIENT
  Age: 20 Year
  Sex: Male
  Weight: 130 kg

DRUGS (2)
  1. VITAMINS B12 [Concomitant]
  2. MODAFINIL. [Suspect]
     Active Substance: MODAFINIL
     Indication: DISTURBANCE IN ATTENTION
     Route: 055

REACTIONS (3)
  - Intentional product use issue [None]
  - Delusion [None]
  - Bipolar disorder [None]

NARRATIVE: CASE EVENT DATE: 20160325
